FAERS Safety Report 21951155 (Version 2)
Quarter: 2023Q1

REPORT INFORMATION
  Report Type: Spontaneous
  Country: DE (occurrence: DE)
  Receive Date: 20230203
  Receipt Date: 20230207
  Transmission Date: 20230418
  Serious: Yes (Hospitalization, Other)
  Sender: FDA-Public Use
  Company Number: DE-002147023-NVSC2023DE021536

PATIENT
  Age: 50 Year
  Sex: Female

DRUGS (4)
  1. KESIMPTA [Suspect]
     Active Substance: OFATUMUMAB
     Indication: Secondary progressive multiple sclerosis
     Dosage: UNK, QMO
     Route: 065
  2. KESIMPTA [Suspect]
     Active Substance: OFATUMUMAB
     Indication: Multiple sclerosis relapse
  3. KESIMPTA [Suspect]
     Active Substance: OFATUMUMAB
     Indication: Relapsing-remitting multiple sclerosis
  4. OCRELIZUMAB [Concomitant]
     Active Substance: OCRELIZUMAB
     Indication: Product used for unknown indication
     Dosage: UNK
     Route: 065

REACTIONS (18)
  - Leukopenia [Unknown]
  - Septic shock [Unknown]
  - Staphylococcal infection [Unknown]
  - Cough [Unknown]
  - Pyrexia [Unknown]
  - General physical health deterioration [Recovering/Resolving]
  - Blood urine present [Unknown]
  - Urosepsis [Unknown]
  - Hypokalaemia [Unknown]
  - Somnolence [Unknown]
  - Disorientation [Unknown]
  - Sinus tachycardia [Unknown]
  - Electrolyte imbalance [Unknown]
  - Hypotension [Unknown]
  - Hyponatraemia [Unknown]
  - Neutropenia [Unknown]
  - Obesity [Unknown]
  - Product use in unapproved indication [Unknown]

NARRATIVE: CASE EVENT DATE: 20221201
